FAERS Safety Report 10802475 (Version 7)
Quarter: 2015Q2

REPORT INFORMATION
  Report Type: Spontaneous
  Country: GB (occurrence: GB)
  Receive Date: 20150217
  Receipt Date: 20150527
  Transmission Date: 20150821
  Serious: Yes (Hospitalization, Other)
  Sender: FDA-Public Use
  Company Number: GB-PFIZER INC-2015056636

PATIENT
  Age: 49 Year
  Sex: Male
  Weight: 87 kg

DRUGS (11)
  1. EPIRUBICIN HCL [Suspect]
     Active Substance: EPIRUBICIN HYDROCHLORIDE
     Dosage: 80 MG, GIVEN AT MOST RECENT ADMINISTRATION
     Route: 042
     Dates: start: 20130920
  2. AVASTIN [Suspect]
     Active Substance: BEVACIZUMAB
     Dosage: 650 MG, GIVEN AT MOST RECENT ADMINISTRATION
     Route: 042
     Dates: start: 20130920
  3. XELODA [Suspect]
     Active Substance: CAPECITABINE
     Dosage: 42000 MG, GIVEN AT MOST RECENT ADMINISTRATION
     Route: 048
     Dates: start: 20130920
  4. AVASTIN [Suspect]
     Active Substance: BEVACIZUMAB
     Indication: GASTRIC CANCER
     Dosage: CYCLE 2 (ARM 2), CYCLIC
     Route: 042
     Dates: start: 20130830
  5. CISPLATIN. [Suspect]
     Active Substance: CISPLATIN
     Dosage: 95 MG, GIVEN AT MOST RECENT ADMINISTRATION
     Route: 042
     Dates: start: 20130920
  6. BENDROFLUMETHIAZIDE [Concomitant]
     Active Substance: BENDROFLUMETHIAZIDE
     Dosage: UNK
     Route: 048
  7. TIOTROPIUM [Concomitant]
     Active Substance: TIOTROPIUM
     Dosage: UNK
     Route: 048
  8. XELODA [Suspect]
     Active Substance: CAPECITABINE
     Indication: GASTRIC CANCER
     Dosage: CYCLE 2 (ARM 2), CYCLIC
     Route: 048
     Dates: start: 20130830
  9. SIMVASTATIN. [Concomitant]
     Active Substance: SIMVASTATIN
     Dosage: UNK
     Route: 048
  10. CISPLATIN. [Suspect]
     Active Substance: CISPLATIN
     Indication: GASTRIC CANCER
     Dosage: CYCLE 2 (ARM 2), CYCLIC
     Route: 042
     Dates: start: 20130830
  11. EPIRUBICIN HCL [Suspect]
     Active Substance: EPIRUBICIN HYDROCHLORIDE
     Indication: GASTRIC CANCER
     Dosage: CYCLE 2 (ARM 2), CYCLIC
     Route: 042
     Dates: start: 20130830

REACTIONS (3)
  - Chest pain [Recovered/Resolved]
  - Myalgia [Recovered/Resolved]
  - Arthralgia [Recovered/Resolved]

NARRATIVE: CASE EVENT DATE: 20130904
